FAERS Safety Report 7705997-X (Version None)
Quarter: 2011Q3

REPORT INFORMATION
  Report Type: 
  Country: None (occurrence: None)
  Receive Date: 20110824
  Receipt Date: 20110822
  Transmission Date: 20111222
  Serious: Yes (Death)
  Sender: FDA-Public Use
  Company Number: PHHY2011FR74142

PATIENT
  Age: 37 Year
  Sex: Female

DRUGS (5)
  1. TRILENE [Concomitant]
  2. SPASMALGINE [Concomitant]
  3. METHERGINE [Suspect]
     Route: 042
  4. OXYTOCIN [Concomitant]
     Dosage: 1 U, UNK
  5. SPARTEINE [Concomitant]

REACTIONS (6)
  - SHOCK [None]
  - CIRCULATORY COLLAPSE [None]
  - THIRST [None]
  - HEART RATE DECREASED [None]
  - BLOOD PRESSURE IMMEASURABLE [None]
  - AGITATION [None]
